FAERS Safety Report 13708599 (Version 1)
Quarter: 2017Q2

REPORT INFORMATION
  Report Type: Spontaneous
  Country: US (occurrence: US)
  Receive Date: 20170630
  Receipt Date: 20170630
  Transmission Date: 20170830
  Serious: No
  Sender: FDA-Public Use
  Company Number: GXBR2017US002090

PATIENT
  Age: 65 Year
  Sex: Female

DRUGS (1)
  1. AMOXICILLIN AND CLAVULANATE [Suspect]
     Active Substance: AMOXICILLIN\CLAVULANIC ACID
     Indication: SINUSITIS
     Dosage: 2 TABLETS, Q12H
     Route: 048

REACTIONS (3)
  - Diarrhoea [Recovering/Resolving]
  - Eructation [Recovering/Resolving]
  - Abdominal pain upper [Recovering/Resolving]
